FAERS Safety Report 22174726 (Version 1)
Quarter: 2023Q2

REPORT INFORMATION
  Report Type: Spontaneous
  Country: ES (occurrence: ES)
  Receive Date: 20230405
  Receipt Date: 20230405
  Transmission Date: 20230722
  Serious: Yes (Other)
  Sender: FDA-Public Use
  Company Number: None

PATIENT
  Age: 74 Year
  Sex: Male
  Weight: 106 kg

DRUGS (7)
  1. EMPAGLIFLOZIN [Suspect]
     Active Substance: EMPAGLIFLOZIN
     Indication: Product used for unknown indication
     Dosage: 1.0 TABLET BEFORE BREAKFAST
     Route: 048
     Dates: start: 20230319
  2. ATACAND 32 mg COMPRIMIDOS, 28 comprimidos [Concomitant]
     Indication: Hypertension
     Dosage: BREAKFAST
     Route: 048
     Dates: start: 20180124
  3. JANUVIA 100 MG COMPRIMIDOS RECUBIERTOS CON PELICULA , 56 comprimidos [Concomitant]
     Indication: Diabetes mellitus
     Route: 048
     Dates: start: 20131005
  4. SIMVASTATINA NORMON 20 mg COMPRIMIDOS RECUBIERTOS CON PEL?CULA EFG, 28 [Concomitant]
     Indication: Type IIa hyperlipidaemia
     Dosage: 20.0 MG DINNER
     Route: 048
     Dates: start: 20111216
  5. ABASAGLAR 100 UNIDADES/ML KWIKPEN SOLUCION INYECTABLE EN PLUMA PRECARG [Concomitant]
     Indication: Diabetes mellitus
     Route: 058
     Dates: start: 20230128
  6. OMEPRAZOL CINFA 20 mg CAPSULAS DURAS GASTRORRESISTENTES EFG , 56 c?psu [Concomitant]
     Indication: Diabetes mellitus
     Dosage: BEFORE BREAKFAST
     Route: 048
     Dates: start: 20210126
  7. ASPIRIN [Concomitant]
     Active Substance: ASPIRIN
     Indication: Diabetes mellitus
     Dosage: BREAKFAST
     Route: 048
     Dates: start: 20120204

REACTIONS (1)
  - Aphasia [Recovered/Resolved]

NARRATIVE: CASE EVENT DATE: 20230324
